FAERS Safety Report 24403321 (Version 1)
Quarter: 2024Q4

REPORT INFORMATION
  Report Type: Report from Study
  Country: JP (occurrence: JP)
  Receive Date: 20241007
  Receipt Date: 20241007
  Transmission Date: 20250115
  Serious: No
  Sender: ROCHE
  Company Number: JP-CHUGAI-2021029756AA

PATIENT
  Age: 69 Year
  Sex: Female
  Weight: 52.7 kg

DRUGS (19)
  1. GAZYVA [Suspect]
     Active Substance: OBINUTUZUMAB
     Indication: Follicular lymphoma
     Route: 041
     Dates: start: 20210518, end: 20210518
  2. GAZYVA [Suspect]
     Active Substance: OBINUTUZUMAB
     Route: 041
     Dates: start: 20210615, end: 20210615
  3. GAZYVA [Suspect]
     Active Substance: OBINUTUZUMAB
     Route: 041
     Dates: start: 20210713, end: 20210713
  4. GAZYVA [Suspect]
     Active Substance: OBINUTUZUMAB
     Route: 041
     Dates: start: 20210810, end: 20210810
  5. GAZYVA [Suspect]
     Active Substance: OBINUTUZUMAB
     Route: 041
     Dates: start: 20210921, end: 20210921
  6. GAZYVA [Suspect]
     Active Substance: OBINUTUZUMAB
     Route: 041
     Dates: start: 20211019, end: 20211019
  7. GAZYVA [Suspect]
     Active Substance: OBINUTUZUMAB
     Route: 065
     Dates: start: 20211130, end: 20211130
  8. GAZYVA [Suspect]
     Active Substance: OBINUTUZUMAB
     Route: 065
     Dates: start: 20220201, end: 20220201
  9. GAZYVA [Suspect]
     Active Substance: OBINUTUZUMAB
     Route: 065
     Dates: start: 20220329, end: 20220329
  10. GAZYVA [Suspect]
     Active Substance: OBINUTUZUMAB
     Route: 065
     Dates: start: 20220531, end: 20220531
  11. GAZYVA [Suspect]
     Active Substance: OBINUTUZUMAB
     Route: 065
     Dates: start: 20220726, end: 20220726
  12. GAZYVA [Suspect]
     Active Substance: OBINUTUZUMAB
     Route: 065
     Dates: start: 20220927, end: 20220927
  13. GAZYVA [Suspect]
     Active Substance: OBINUTUZUMAB
     Route: 065
     Dates: start: 20221122, end: 20221122
  14. GAZYVA [Suspect]
     Active Substance: OBINUTUZUMAB
     Route: 065
     Dates: start: 20230117, end: 20230117
  15. GAZYVA [Suspect]
     Active Substance: OBINUTUZUMAB
     Route: 065
     Dates: start: 20230314, end: 20230314
  16. GAZYVA [Suspect]
     Active Substance: OBINUTUZUMAB
     Route: 065
     Dates: start: 20230516, end: 20230516
  17. GAZYVA [Suspect]
     Active Substance: OBINUTUZUMAB
     Route: 065
     Dates: start: 20230711, end: 20230711
  18. GAZYVA [Suspect]
     Active Substance: OBINUTUZUMAB
     Route: 065
     Dates: start: 20230912, end: 20230912
  19. BENDAMUSTINE HYDROCHLORIDE [Concomitant]
     Active Substance: BENDAMUSTINE HYDROCHLORIDE
     Indication: Follicular lymphoma
     Dosage: UNK
     Route: 042
     Dates: start: 20210518, end: 20211020

REACTIONS (1)
  - Platelet count decreased [Recovered/Resolved]
